FAERS Safety Report 5015492-7 (Version None)
Quarter: 2006Q2

REPORT INFORMATION
  Report Type: 
  Country: None (occurrence: None)
  Receive Date: 20060530
  Receipt Date: 20060530
  Transmission Date: 20061013
  Serious: Yes (Hospitalization)
  Sender: FDA-Public Use
  Company Number: None

PATIENT
  Age: 34 Year
  Sex: Male
  Weight: 63.9572 kg

DRUGS (1)
  1. ZOSYN [Suspect]

REACTIONS (2)
  - RASH PRURITIC [None]
  - THROMBOCYTOPENIA [None]
